FAERS Safety Report 6941841-6 (Version None)
Quarter: 2010Q3

REPORT INFORMATION
  Report Type: 
  Country: None (occurrence: None)
  Receive Date: 20100826
  Receipt Date: 20100820
  Transmission Date: 20110219
  Serious: Yes (Other)
  Sender: FDA-Public Use
  Company Number: DE-PFIZER INC-2010105157

PATIENT
  Age: 69 Year
  Sex: Female

DRUGS (4)
  1. CELEBREX [Suspect]
     Dosage: 200 MG, PER DAY
     Route: 048
  2. ARTHROTEC [Concomitant]
     Dosage: UNK
  3. ATACAND [Concomitant]
     Dosage: 4 MG, UNK
  4. CORTISONE [Concomitant]
     Dosage: 2 MG, UNK

REACTIONS (1)
  - HYPERKALAEMIA [None]
